FAERS Safety Report 7086412-9 (Version None)
Quarter: 2010Q4

REPORT INFORMATION
  Report Type: 
  Country: None (occurrence: None)
  Receive Date: 20101105
  Receipt Date: 20101028
  Transmission Date: 20110411
  Serious: Yes (Hospitalization)
  Sender: FDA-Public Use
  Company Number: GB-JNJFOC-20080401388

PATIENT
  Age: 6 Year
  Sex: Male

DRUGS (3)
  1. IBUPROFEN [Suspect]
     Indication: PYREXIA
     Route: 048
  2. PARACETAMOL [Concomitant]
     Indication: PYREXIA
     Route: 048
  3. UNSPECIFIED ANTIBIOTICS [Concomitant]

REACTIONS (4)
  - COAGULOPATHY [None]
  - HAEMORRHAGE [None]
  - RENAL FAILURE ACUTE [None]
  - RENAL TUBULAR NECROSIS [None]
